FAERS Safety Report 4825910-2 (Version None)
Quarter: 2005Q4

REPORT INFORMATION
  Report Type: 
  Country: None (occurrence: None)
  Receive Date: 20051111
  Receipt Date: 20051102
  Transmission Date: 20060501
  Serious: Yes (Hospitalization)
  Sender: FDA-Public Use
  Company Number: JP-JNJFOC-20051004311

PATIENT
  Sex: Male

DRUGS (4)
  1. ITRIZOLE [Suspect]
     Indication: NAIL TINEA
     Route: 048
     Dates: start: 20051007, end: 20051014
  2. BEZAFIBRATE [Concomitant]
     Indication: HYPERLIPIDAEMIA
     Route: 048
     Dates: end: 20051014
  3. ALLOPURINOL [Concomitant]
     Indication: HYPERURICAEMIA
     Route: 048
     Dates: end: 20051014
  4. HAINO-SAN-KYO-TO [Concomitant]
     Indication: PYODERMA
     Route: 048
     Dates: start: 20050902, end: 20051014

REACTIONS (4)
  - DRUG ERUPTION [None]
  - LIVER DISORDER [None]
  - LYMPHADENOPATHY [None]
  - PYREXIA [None]
